FAERS Safety Report 25612926 (Version 1)
Quarter: 2025Q3

REPORT INFORMATION
  Report Type: Spontaneous
  Country: CA (occurrence: None)
  Receive Date: 20250726
  Receipt Date: 20250726
  Transmission Date: 20251020
  Serious: Yes (Disabling)
  Sender: FDA-CTU
  Company Number: None

PATIENT
  Age: 63 Year
  Sex: Female

DRUGS (1)
  1. CELEXA [Suspect]
     Active Substance: CITALOPRAM HYDROBROMIDE

REACTIONS (23)
  - Drug ineffective [None]
  - Anxiety [None]
  - Illness [None]
  - Photosensitivity reaction [None]
  - Burning sensation [None]
  - Depersonalisation/derealisation disorder [None]
  - Derealisation [None]
  - Electric shock sensation [None]
  - Withdrawal syndrome [None]
  - Akathisia [None]
  - Restlessness [None]
  - Neuralgia [None]
  - Suicidal ideation [None]
  - Abdominal pain upper [None]
  - Brain fog [None]
  - Insomnia [None]
  - Fatigue [None]
  - Eating disorder [None]
  - Asthenia [None]
  - Gait disturbance [None]
  - Cognitive disorder [None]
  - Swelling face [None]
  - Quality of life decreased [None]

NARRATIVE: CASE EVENT DATE: 20200902
